FAERS Safety Report 7775260-X (Version None)
Quarter: 2011Q3

REPORT INFORMATION
  Report Type: 
  Country: None (occurrence: None)
  Receive Date: 20110923
  Receipt Date: 20110915
  Transmission Date: 20111222
  Serious: Yes (Other)
  Sender: FDA-Public Use
  Company Number: DE-ABBOTT-10P-062-0650597-00

PATIENT
  Age: 61 Year
  Sex: Female
  Weight: 68 kg

DRUGS (1)
  1. HUMIRA [Suspect]
     Indication: PSORIASIS
     Dosage: 40MG EOW PEN
     Route: 058

REACTIONS (7)
  - DIABETES MELLITUS [None]
  - DIARRHOEA [None]
  - HEADACHE [None]
  - MYALGIA [None]
  - ABASIA [None]
  - ARTHRALGIA [None]
  - VIRAL INFECTION [None]
